FAERS Safety Report 6729208-7 (Version None)
Quarter: 2010Q2

REPORT INFORMATION
  Report Type: 
  Country: None (occurrence: None)
  Receive Date: 20100517
  Receipt Date: 20100420
  Transmission Date: 20101027
  Serious: No
  Sender: FDA-Public Use
  Company Number: US-ABBOTT-10P-163-0639882-00

PATIENT
  Sex: Female
  Weight: 43.13 kg

DRUGS (3)
  1. SIMCOR [Suspect]
     Indication: HIGH DENSITY LIPOPROTEIN DECREASED
     Dosage: AT BEDTIME
     Dates: start: 20100417
  2. VIT D [Concomitant]
     Indication: DRUG USE FOR UNKNOWN INDICATION
  3. ADVIL [Concomitant]
     Indication: DRUG USE FOR UNKNOWN INDICATION
     Route: 048

REACTIONS (4)
  - CHEST PAIN [None]
  - DYSPEPSIA [None]
  - FLUSHING [None]
  - SKIN BURNING SENSATION [None]
